FAERS Safety Report 8204645-2 (Version None)
Quarter: 2012Q1

REPORT INFORMATION
  Report Type: 
  Country: None (occurrence: None)
  Receive Date: 20120313
  Receipt Date: 20120229
  Transmission Date: 20120608
  Serious: Yes (Hospitalization, Other)
  Sender: FDA-Public Use
  Company Number: US-ELI_LILLY_AND_COMPANY-US201110004349

PATIENT
  Sex: Female

DRUGS (11)
  1. FOSAMAX [Concomitant]
  2. CELEBREX [Concomitant]
  3. NEXIUM [Concomitant]
  4. FORTEO [Suspect]
     Indication: OSTEOPOROSIS
     Dosage: 20 UG, QD
  5. FORTEO [Suspect]
     Dosage: 20 UG, QD
  6. FORTEO [Suspect]
     Dosage: 20 UG, QD
  7. GABAPENTIN [Concomitant]
     Indication: RESTLESS LEGS SYNDROME
  8. FORTEO [Suspect]
     Dosage: 20 UG, QD
  9. CORTISONE ACETATE [Concomitant]
  10. MIRAPEX [Concomitant]
     Indication: RESTLESS LEGS SYNDROME
  11. HYDROCHLOROTHIAZIDE [Concomitant]
     Dosage: 25 MG, UNK

REACTIONS (16)
  - HYPOAESTHESIA [None]
  - GAIT DISTURBANCE [None]
  - VOMITING [None]
  - NAUSEA [None]
  - LOSS OF CONSCIOUSNESS [None]
  - CARDIAC DISORDER [None]
  - CHEST PAIN [None]
  - FALL [None]
  - PAIN IN EXTREMITY [None]
  - NERVE INJURY [None]
  - ABDOMINAL DISCOMFORT [None]
  - ARTHRALGIA [None]
  - CONVULSION [None]
  - MUSCLE STRAIN [None]
  - DIZZINESS [None]
  - PAIN IN JAW [None]
